FAERS Safety Report 5515037-9 (Version None)
Quarter: 2007Q4

REPORT INFORMATION
  Report Type: 
  Country: None (occurrence: None)
  Receive Date: 20071113
  Receipt Date: 20061127
  Transmission Date: 20080405
  Serious: No
  Sender: FDA-Public Use
  Company Number: A0628690A

PATIENT
  Sex: Female

DRUGS (2)
  1. COREG [Suspect]
     Indication: HYPERTENSION
     Route: 048
     Dates: start: 20061001
  2. LISINOPRIL [Concomitant]

REACTIONS (6)
  - DISTURBANCE IN ATTENTION [None]
  - EARLY MORNING AWAKENING [None]
  - FATIGUE [None]
  - LETHARGY [None]
  - NIGHTMARE [None]
  - PHARMACEUTICAL PRODUCT COMPLAINT [None]
